FAERS Safety Report 5781502-2 (Version None)
Quarter: 2008Q2

REPORT INFORMATION
  Report Type: 
  Country: None (occurrence: None)
  Receive Date: 20080619
  Receipt Date: 20080515
  Transmission Date: 20081010
  Serious: Yes (Hospitalization)
  Sender: FDA-Public Use
  Company Number: ADE# 08-070

PATIENT
  Age: 37 Year
  Sex: Female

DRUGS (2)
  1. PHENYTOIN SODIUM [Suspect]
     Indication: EPILEPSY
     Dosage: 500 MG BEDTIME
     Dates: start: 20080428, end: 20080511
  2. DILANTIN [Concomitant]

REACTIONS (1)
  - HOSPITALISATION [None]
